FAERS Safety Report 8822209 (Version 6)
Quarter: 2014Q2

REPORT INFORMATION
  Report Type: Spontaneous
  Country: US (occurrence: US)
  Receive Date: 20121003
  Receipt Date: 20140409
  Transmission Date: 20141212
  Serious: Yes (Hospitalization, Disabling, Other)
  Sender: FDA-Public Use
  Company Number: US-009507513-1209USA000874

PATIENT
  Sex: Female
  Weight: 59.86 kg

DRUGS (4)
  1. FOSAMAX [Suspect]
     Indication: OSTEOPOROSIS
     Dosage: 10 MG, UNK
     Route: 048
     Dates: start: 1996
  2. FOSAMAX [Suspect]
     Dosage: 70 MG, QW
     Route: 048
     Dates: start: 20010330, end: 2004
  3. FOSAMAX [Suspect]
     Dosage: UNK
     Route: 048
  4. ALENDRONATE SODIUM [Suspect]

REACTIONS (71)
  - Femur fracture [Not Recovered/Not Resolved]
  - Intramedullary rod insertion [Unknown]
  - Femur fracture [Recovered/Resolved]
  - Intramedullary rod insertion [Unknown]
  - Removal of internal fixation [Unknown]
  - Removal of internal fixation [Unknown]
  - Acute prerenal failure [Unknown]
  - Anaemia postoperative [Unknown]
  - Haemorrhagic anaemia [Unknown]
  - Rotator cuff repair [Unknown]
  - Cholecystectomy [Unknown]
  - Carotid endarterectomy [Unknown]
  - Hip arthroplasty [Unknown]
  - Shoulder arthroplasty [Unknown]
  - Sepsis [Unknown]
  - Renal failure chronic [Not Recovered/Not Resolved]
  - Staphylococcal infection [Unknown]
  - Chronic obstructive pulmonary disease [Not Recovered/Not Resolved]
  - Type V hyperlipidaemia [Unknown]
  - Essential hypertension [Unknown]
  - Osteoarthritis [Unknown]
  - Cataract [Unknown]
  - Cataract operation [Unknown]
  - Urinary incontinence [Unknown]
  - Spinal column stenosis [Unknown]
  - Tendon operation [Unknown]
  - Spinal osteoarthritis [Unknown]
  - Blood potassium decreased [Unknown]
  - Urinary tract infection [Unknown]
  - Rib fracture [Unknown]
  - Postoperative ileus [Unknown]
  - Sleep disorder [Unknown]
  - Enostosis [Unknown]
  - Pulmonary mass [Unknown]
  - Medical device removal [Unknown]
  - Medical device removal [Unknown]
  - Peripheral swelling [Unknown]
  - Osteopenia [Unknown]
  - Pulmonary fibrosis [Unknown]
  - Scoliosis [Unknown]
  - Bronchial hyperreactivity [Unknown]
  - Appendicectomy [Unknown]
  - Age-related macular degeneration [Unknown]
  - Diverticulitis [Unknown]
  - Carotid artery stenosis [Unknown]
  - Subclavian artery stenosis [Unknown]
  - Rotator cuff syndrome [Unknown]
  - Tendon rupture [Unknown]
  - Nasal septum deviation [Unknown]
  - Carpal tunnel syndrome [Unknown]
  - Cerebrovascular disorder [Unknown]
  - Tremor [Unknown]
  - Rhinitis [Unknown]
  - Fall [Unknown]
  - Balance disorder [Unknown]
  - Restless legs syndrome [Unknown]
  - Polypectomy [Unknown]
  - Peripheral arterial occlusive disease [Unknown]
  - Transient ischaemic attack [Unknown]
  - Peripheral swelling [Unknown]
  - Asthenia [Unknown]
  - Migraine without aura [Unknown]
  - Headache [Unknown]
  - Myalgia [Unknown]
  - Neck pain [Not Recovered/Not Resolved]
  - Pain in extremity [Unknown]
  - Arthralgia [Unknown]
  - Back pain [Not Recovered/Not Resolved]
  - Drug ineffective [Unknown]
  - Oedema peripheral [Unknown]
  - Gastrooesophageal reflux disease [Unknown]
